FAERS Safety Report 8009839-7 (Version None)
Quarter: 2011Q4

REPORT INFORMATION
  Report Type: 
  Country: None (occurrence: None)
  Receive Date: 20111228
  Receipt Date: 20111216
  Transmission Date: 20120403
  Serious: Yes (Hospitalization, Other)
  Sender: FDA-Public Use
  Company Number: SE-BAYER-2011-120939

PATIENT
  Sex: Male
  Weight: 4.14 kg

DRUGS (1)
  1. MIRENA [Suspect]
     Route: 064

REACTIONS (6)
  - RESPIRATORY RATE INCREASED [None]
  - GRUNTING [None]
  - INCREASED UPPER AIRWAY SECRETION [None]
  - CYANOSIS [None]
  - MATERNAL DRUGS AFFECTING FOETUS [None]
  - CARDIAC MURMUR [None]
